FAERS Safety Report 6274608 (Version 39)
Quarter: 2013Q4

REPORT INFORMATION
  Report Type: Spontaneous
  Country: US (occurrence: US)
  Receive Date: 20070329
  Receipt Date: 20131028
  Transmission Date: 20140711
  Serious: Yes (Death, Hospitalization, Other)
  Sender: FDA-Public Use
  Company Number: PHEH2007US03406

PATIENT
  Age: 57 Year
  Sex: Male

DRUGS (31)
  1. ZOMETA [Suspect]
     Indication: PLASMA CELL MYELOMA
     Route: 042
  2. AREDIA [Suspect]
     Route: 042
  3. TESTIM [Concomitant]
  4. MULTIPLE VITAMINS [Concomitant]
  5. METAMUCIL [Concomitant]
     Dosage: 0.52 G
  6. ASPIRIN ^BAYER^ [Concomitant]
  7. FISH OIL [Concomitant]
     Dosage: 500 MG
  8. EFFEXOR-XR [Concomitant]
  9. MORPHINE [Concomitant]
  10. INFLUENZA VIRUS VACCINE [Concomitant]
  11. WELLBUTRIN XL [Concomitant]
  12. ANDROGEL [Concomitant]
  13. LEXAPRO [Concomitant]
  14. TYLENOL [Concomitant]
  15. OXYCODONE [Concomitant]
  16. ATIVAN [Concomitant]
  17. DECORTIN [Concomitant]
  18. LOPID [Concomitant]
  19. ZOLOFT (SERTRALINE) [Concomitant]
  20. PRILOSEC [Concomitant]
  21. NEURONTIN [Concomitant]
  22. TRAZODONE [Concomitant]
  23. PROPANOLOL [Concomitant]
  24. HYDROCORTISONE [Concomitant]
  25. DOXYCYCLINE [Concomitant]
  26. REVLIMID [Concomitant]
  27. THORAZINE [Concomitant]
  28. DECADRON                                /CAN/ [Concomitant]
  29. DEPO-TESTOSTERONE [Concomitant]
  30. MUCINEX [Concomitant]
  31. SUDAFED [Concomitant]

REACTIONS (149)
  - Seborrhoeic keratosis [Unknown]
  - Anogenital warts [Unknown]
  - Intervertebral disc protrusion [Unknown]
  - Vertebral foraminal stenosis [Unknown]
  - Kyphosis [Unknown]
  - Nocturia [Unknown]
  - Osteopenia [Unknown]
  - Hypertriglyceridaemia [Unknown]
  - Hypercholesterolaemia [Unknown]
  - Essential tremor [Unknown]
  - Primary hypogonadism [Unknown]
  - Thrombocytosis [Unknown]
  - Muscle strain [Unknown]
  - Fatigue [Unknown]
  - Soft tissue disorder [Unknown]
  - Pulmonary mass [Unknown]
  - Oedema peripheral [Unknown]
  - Blood lactate dehydrogenase increased [Unknown]
  - Pupils unequal [Unknown]
  - Cough [Unknown]
  - Post herpetic neuralgia [Unknown]
  - Herpes zoster [Unknown]
  - Urticaria [Unknown]
  - Chest discomfort [Unknown]
  - Weight decreased [Unknown]
  - Flatulence [Unknown]
  - Depression [Unknown]
  - Nausea [Recovered/Resolved]
  - Erectile dysfunction [Unknown]
  - Back pain [Unknown]
  - Dyspnoea [Unknown]
  - Dyspepsia [Unknown]
  - Stress [Unknown]
  - Arteriosclerosis coronary artery [Unknown]
  - Pneumonia [Unknown]
  - Viral upper respiratory tract infection [Unknown]
  - Sialoadenitis [Unknown]
  - Oedema mouth [Unknown]
  - Oropharyngeal swelling [Unknown]
  - Swelling [Unknown]
  - Milia [Unknown]
  - Parotid duct obstruction [Unknown]
  - Splenomegaly [Unknown]
  - Pleural effusion [Unknown]
  - Acanthosis [Unknown]
  - Thrombocytopenia [Unknown]
  - Splenic infarction [Unknown]
  - Endocarditis [Unknown]
  - Aortic valve calcification [Unknown]
  - Libido decreased [Unknown]
  - Testicular failure [Unknown]
  - Testicular necrosis [Unknown]
  - Chondropathy [Unknown]
  - Dysphagia [Unknown]
  - Fall [Unknown]
  - Asthenia [Unknown]
  - Hiatus hernia [Unknown]
  - Chest pain [Unknown]
  - Respiratory failure [Unknown]
  - Septic shock [Unknown]
  - Night sweats [Recovered/Resolved]
  - Tongue discolouration [Unknown]
  - Tongue pigmentation [Unknown]
  - Purpura [Unknown]
  - Skin lesion [Unknown]
  - Chills [Unknown]
  - Eye irritation [Unknown]
  - Ocular hyperaemia [Unknown]
  - Oral candidiasis [Unknown]
  - Pharyngitis [Unknown]
  - Sinusitis [Unknown]
  - Eye infection [Unknown]
  - Oropharyngeal pain [Unknown]
  - Oral herpes [Unknown]
  - Eating disorder [Unknown]
  - Hypotension [Unknown]
  - Hypoxia [Unknown]
  - Dehydration [Unknown]
  - Renal failure acute [Unknown]
  - Abdominal discomfort [Unknown]
  - Malnutrition [Unknown]
  - Moaning [Unknown]
  - Lethargy [Unknown]
  - Odynophagia [Unknown]
  - Tachycardia [Unknown]
  - Abdominal tenderness [Unknown]
  - Wound [Unknown]
  - Excessive granulation tissue [Unknown]
  - Exposed bone in jaw [Unknown]
  - Burning sensation [Unknown]
  - Paraesthesia [Unknown]
  - Vertigo [Unknown]
  - Vitreous floaters [Unknown]
  - Diplopia [Unknown]
  - Osteosclerosis [Unknown]
  - Adrenal calcification [Unknown]
  - Intervertebral disc calcification [Unknown]
  - Obstructive airways disorder [Unknown]
  - Periorbital cellulitis [Unknown]
  - Eyelid oedema [Unknown]
  - Eye pain [Unknown]
  - Myeloid leukaemia [Fatal]
  - Second primary malignancy [Fatal]
  - Sepsis [Fatal]
  - Febrile neutropenia [Unknown]
  - Atelectasis [Unknown]
  - Umbilical hernia [Unknown]
  - Abdominal wall haematoma [Unknown]
  - Bacterial infection [Unknown]
  - Osteonecrosis of jaw [Unknown]
  - General physical health deterioration [Unknown]
  - Pain [Unknown]
  - Anxiety [Unknown]
  - Decreased interest [Unknown]
  - Osteonecrosis [Unknown]
  - Neuropathy peripheral [Unknown]
  - Deep vein thrombosis [Unknown]
  - Spinal osteoarthritis [Unknown]
  - Metastases to bone [Unknown]
  - Fractured sacrum [Unknown]
  - Compression fracture [Unknown]
  - Inflammation [Unknown]
  - Plasmacytosis [Unknown]
  - Peritoneal disorder [Unknown]
  - Abdominal pain [Unknown]
  - Anaemia [Unknown]
  - Hepatic steatosis [Unknown]
  - Intervertebral disc degeneration [Unknown]
  - Facet joint syndrome [Unknown]
  - Cancer pain [Unknown]
  - Bone disorder [Unknown]
  - Fistula [Unknown]
  - Osteolysis [Unknown]
  - Myelodysplastic syndrome [Unknown]
  - Pancytopenia [Unknown]
  - Dystrophic calcification [Unknown]
  - Clostridium difficile colitis [Unknown]
  - Emphysema [Unknown]
  - Epicondylitis [Unknown]
  - Lumbar spinal stenosis [Unknown]
  - Pain in jaw [Unknown]
  - Bone lesion [Unknown]
  - Osteomyelitis [Unknown]
  - Mouth haemorrhage [Unknown]
  - Poikilocytosis [Unknown]
  - Adrenal disorder [Unknown]
  - Hyperplasia [Unknown]
  - Squamous cell carcinoma [Unknown]
  - Hyperkeratosis [Unknown]
